FAERS Safety Report 8244828-9 (Version None)
Quarter: 2012Q1

REPORT INFORMATION
  Report Type: 
  Country: None (occurrence: None)
  Receive Date: 20120329
  Receipt Date: 20110526
  Transmission Date: 20120608
  Serious: No
  Sender: FDA-Public Use
  Company Number: US-MYLANLABS-2011S1011286

PATIENT
  Age: 46 Year
  Sex: Male

DRUGS (1)
  1. FENTANYL-100 [Suspect]
     Dosage: Q3D
     Route: 062
     Dates: start: 20100109

REACTIONS (4)
  - RHINORRHOEA [None]
  - DRUG WITHDRAWAL SYNDROME [None]
  - DIARRHOEA [None]
  - HYPERHIDROSIS [None]
